FAERS Safety Report 5607368-9 (Version None)
Quarter: 2008Q1

REPORT INFORMATION
  Report Type: 
  Country: None (occurrence: None)
  Receive Date: 20080130
  Receipt Date: 20080118
  Transmission Date: 20080703
  Serious: Yes (Other)
  Sender: FDA-Public Use
  Company Number: ES-ELI_LILLY_AND_COMPANY-ES200801003733

PATIENT
  Age: 77 Year
  Sex: Male

DRUGS (2)
  1. GEMZAR [Suspect]
     Indication: RENAL CELL CARCINOMA
     Dosage: 1250 MG/M2, UNKNOWN
     Route: 042
     Dates: start: 20070101, end: 20071001
  2. XELODA [Concomitant]
     Indication: RENAL CELL CARCINOMA
     Dosage: 1000 MG/M2, UNKNOWN
     Route: 048
     Dates: start: 20070101, end: 20071001

REACTIONS (1)
  - AMNESIA [None]
